FAERS Safety Report 10154451 (Version 6)
Quarter: 2014Q3

REPORT INFORMATION
  Report Type: Spontaneous
  Country: US (occurrence: US)
  Receive Date: 20140506
  Receipt Date: 20140711
  Transmission Date: 20150326
  Serious: Yes (Hospitalization, Disabling)
  Sender: FDA-Public Use
  Company Number: US-JNJFOC-20140500524

PATIENT
  Age: 80 Year
  Sex: Female
  Weight: 73.48 kg

DRUGS (26)
  1. CELEBREX [Concomitant]
     Active Substance: CELECOXIB
     Indication: OSTEOARTHRITIS
     Route: 048
  2. XARELTO [Suspect]
     Active Substance: RIVAROXABAN
     Indication: ATRIAL FIBRILLATION
     Route: 048
     Dates: start: 20131018, end: 201404
  3. IRON [Concomitant]
     Active Substance: IRON
     Indication: ANAEMIA
     Route: 065
     Dates: end: 201401
  4. ATACAND [Concomitant]
     Active Substance: CANDESARTAN CILEXETIL
     Indication: BLOOD PRESSURE
     Dosage: BEDTIME
     Route: 065
     Dates: start: 1995
  5. B VITAMIN COMPLEX [Concomitant]
     Dosage: BEDTIME
     Route: 065
  6. FLAXSEED [Concomitant]
     Active Substance: FLAX SEED
     Dosage: MORNING
     Route: 065
  7. IRON SULFATE [Concomitant]
     Active Substance: FERROUS SULFATE ANHYDROUS
     Indication: ANAEMIA
     Route: 065
     Dates: start: 201312, end: 201405
  8. FLECAINIDE [Concomitant]
     Active Substance: FLECAINIDE
     Indication: ATRIAL FIBRILLATION
     Route: 065
     Dates: start: 201401, end: 201406
  9. XARELTO [Suspect]
     Active Substance: RIVAROXABAN
     Indication: ANTICOAGULANT THERAPY
     Route: 048
     Dates: start: 20131018, end: 201404
  10. XARELTO [Suspect]
     Active Substance: RIVAROXABAN
     Indication: CEREBROVASCULAR ACCIDENT PROPHYLAXIS
     Route: 048
     Dates: start: 20131018, end: 201404
  11. ATENOLOL. [Concomitant]
     Active Substance: ATENOLOL
     Indication: ATRIAL FIBRILLATION
     Dosage: MORNING, BEDTIME
     Route: 048
     Dates: start: 1998
  12. NEXIUM [Concomitant]
     Active Substance: ESOMEPRAZOLE MAGNESIUM
     Indication: GASTROOESOPHAGEAL REFLUX DISEASE
     Dosage: BEDTIME
     Route: 048
     Dates: start: 1989
  13. MULTIVITAMIN AND MINERAL [Concomitant]
     Dosage: MORNING
     Route: 065
  14. HYDROXYZINE HCL [Concomitant]
     Active Substance: HYDROXYZINE HYDROCHLORIDE
     Dosage: BEDTIME
     Route: 065
  15. VICODIN [Concomitant]
     Active Substance: ACETAMINOPHEN\HYDROCODONE BITARTRATE
     Dosage: 5/500 MG AS NEEDED
     Route: 065
  16. XARELTO [Suspect]
     Active Substance: RIVAROXABAN
     Indication: TRANSIENT ISCHAEMIC ATTACK
     Route: 048
     Dates: start: 20131018, end: 201404
  17. ASPIRIN. [Concomitant]
     Active Substance: ASPIRIN
     Indication: ARTERIOSCLEROSIS
     Route: 048
     Dates: start: 20140410
  18. ASPIRIN. [Concomitant]
     Active Substance: ASPIRIN
     Indication: ARTERIOSCLEROSIS
     Route: 048
  19. TEMAZEPAM. [Concomitant]
     Active Substance: TEMAZEPAM
     Dosage: BEDTIME
     Route: 065
  20. ATENOLOL. [Concomitant]
     Active Substance: ATENOLOL
     Indication: HYPERTENSION
     Dosage: MORNING, BEDTIME
     Route: 048
     Dates: start: 1998
  21. ENDOCET [Concomitant]
     Active Substance: ACETAMINOPHEN\OXYCODONE HYDROCHLORIDE
     Dosage: 10/325 MG AS NEEDED
     Route: 065
  22. ISOSORBIDE MONONITRATE. [Concomitant]
     Active Substance: ISOSORBIDE MONONITRATE
     Indication: BLOOD PRESSURE
     Dosage: MORNING
     Route: 048
  23. CALCIUM CITRATE WITH VITAMIN D [Concomitant]
     Active Substance: CALCIUM CITRATE\VITAMIN D
     Dosage: BEDTIME
     Route: 065
  24. VITAMIN B12 [Concomitant]
     Active Substance: CYANOCOBALAMIN
     Indication: VITAMIN B12 DEFICIENCY
     Dosage: BEDTIME
     Route: 030
  25. CRESTOR [Concomitant]
     Active Substance: ROSUVASTATIN CALCIUM
     Indication: BLOOD CHOLESTEROL
     Dosage: BEDTIME
     Route: 048
     Dates: start: 1990
  26. PROPAFENONE. [Concomitant]
     Active Substance: PROPAFENONE
     Dosage: MORNING, BEDTIME
     Route: 065

REACTIONS (14)
  - Asthenia [Recovered/Resolved]
  - Fatigue [Unknown]
  - Platelet count decreased [Recovered/Resolved]
  - Muscle atrophy [Recovering/Resolving]
  - Drug hypersensitivity [Unknown]
  - Malaise [Unknown]
  - Transaminases increased [Unknown]
  - White blood cell count decreased [Recovered/Resolved]
  - Blood lactate dehydrogenase increased [Unknown]
  - Dyspnoea [Unknown]
  - Muscle spasms [Unknown]
  - Anaemia [Recovered/Resolved]
  - Abasia [Unknown]
  - Influenza like illness [Unknown]

NARRATIVE: CASE EVENT DATE: 201310
